FAERS Safety Report 19042248 (Version 4)
Quarter: 2022Q2

REPORT INFORMATION
  Report Type: Report from Study
  Country: DE (occurrence: DE)
  Receive Date: 20210322
  Receipt Date: 20220419
  Transmission Date: 20220721
  Serious: Yes (Death, Hospitalization, Other)
  Sender: FDA-Public Use
  Company Number: DE-TAKEDA-DE202022419

PATIENT
  Age: 50 Year
  Sex: Male

DRUGS (1)
  1. IDURSULFASE [Suspect]
     Active Substance: IDURSULFASE
     Indication: Mucopolysaccharidosis II
     Dosage: 0.5 MILLIGRAM/KILOGRAM, 1X/WEEK
     Route: 042
     Dates: start: 20060919

REACTIONS (3)
  - Suspected suicide [Fatal]
  - Aortic valve disease [Recovered/Resolved]
  - Tracheostomy [Recovered/Resolved]

NARRATIVE: CASE EVENT DATE: 20200201
